FAERS Safety Report 24125642 (Version 1)
Quarter: 2024Q3

REPORT INFORMATION
  Report Type: Spontaneous
  Country: AU (occurrence: AU)
  Receive Date: 20240723
  Receipt Date: 20240723
  Transmission Date: 20241017
  Serious: Yes (Other)
  Sender: ACCORD
  Company Number: None

PATIENT

DRUGS (1)
  1. PACLITAXEL [Suspect]
     Active Substance: PACLITAXEL
     Indication: Product used for unknown indication

REACTIONS (8)
  - Blood pressure decreased [Unknown]
  - Loss of consciousness [Unknown]
  - Flushing [Unknown]
  - Hyperhidrosis [Unknown]
  - Hypersensitivity [Unknown]
  - Nausea [Unknown]
  - Oxygen saturation decreased [Unknown]
  - Vomiting [Unknown]
